FAERS Safety Report 14860516 (Version 3)
Quarter: 2018Q3

REPORT INFORMATION
  Report Type: Report from Study
  Country: IT (occurrence: IT)
  Receive Date: 20180508
  Receipt Date: 20180724
  Transmission Date: 20181010
  Serious: Yes (Hospitalization)
  Sender: FDA-Public Use
  Company Number: IT-PFIZER INC-2018175883

PATIENT
  Age: 42 Year
  Sex: Female

DRUGS (3)
  1. VINORELBINE TARTRATE. [Suspect]
     Active Substance: VINORELBINE TARTRATE
     Indication: HODGKIN^S DISEASE
     Dosage: 8.52 MG, CYCLIC
     Route: 042
     Dates: start: 20171110, end: 20180203
  2. DACARBAZINE. [Suspect]
     Active Substance: DACARBAZINE
     Indication: HODGKIN^S DISEASE
     Dosage: 532.5 MG, CYCLIC
     Route: 042
     Dates: start: 20171110, end: 20180203
  3. DOXORUBICIN HCL [Suspect]
     Active Substance: DOXORUBICIN HYDROCHLORIDE
     Indication: HODGKIN^S DISEASE
     Dosage: 35.5 MG, CYCLIC
     Route: 042
     Dates: start: 20171110, end: 20180203

REACTIONS (1)
  - Infusion site swelling [Recovering/Resolving]

NARRATIVE: CASE EVENT DATE: 20180202
